FAERS Safety Report 10471567 (Version 3)
Quarter: 2015Q3

REPORT INFORMATION
  Report Type: Report from Study
  Country: US (occurrence: US)
  Receive Date: 20140923
  Receipt Date: 20150818
  Transmission Date: 20151125
  Serious: No
  Sender: FDA-Public Use
  Company Number: US-GILEAD-2014-0115924

PATIENT
  Age: 67 Year
  Sex: Male

DRUGS (13)
  1. SIMVASTATIN. [Concomitant]
     Active Substance: SIMVASTATIN
  2. AMIODARONE [Concomitant]
     Active Substance: AMIODARONE
  3. OXYCONTIN [Concomitant]
     Active Substance: OXYCODONE HYDROCHLORIDE
  4. AMBRISENTAN [Suspect]
     Active Substance: AMBRISENTAN
     Indication: COR PULMONALE CHRONIC
     Dosage: 10 MG, QD
     Route: 065
     Dates: start: 20121211
  5. FUROSEMIDE. [Concomitant]
     Active Substance: FUROSEMIDE
  6. NAPROXEN. [Concomitant]
     Active Substance: NAPROXEN
  7. TYVASO [Concomitant]
     Active Substance: TREPROSTINIL
  8. PLAVIX [Concomitant]
     Active Substance: CLOPIDOGREL BISULFATE
  9. ADCIRCA [Concomitant]
     Active Substance: TADALAFIL
  10. METOPROLOL SUCCINATE. [Concomitant]
     Active Substance: METOPROLOL SUCCINATE
  11. LORAZEPAM. [Concomitant]
     Active Substance: LORAZEPAM
  12. BUPROPION. [Concomitant]
     Active Substance: BUPROPION
  13. OMEPRAZOLE. [Concomitant]
     Active Substance: OMEPRAZOLE

REACTIONS (1)
  - Liver function test abnormal [Unknown]

NARRATIVE: CASE EVENT DATE: 20140512
